FAERS Safety Report 8184736-5 (Version None)
Quarter: 2012Q1

REPORT INFORMATION
  Report Type: 
  Country: None (occurrence: None)
  Receive Date: 20120305
  Receipt Date: 20120305
  Transmission Date: 20120608
  Serious: No
  Sender: FDA-Public Use
  Company Number: None

PATIENT
  Age: 79 Year
  Sex: Female
  Weight: 68.038 kg

DRUGS (1)
  1. OMEPRAZOLE [Suspect]
     Indication: GASTROOESOPHAGEAL REFLUX DISEASE
     Route: 048
     Dates: start: 20100302, end: 20100303

REACTIONS (6)
  - HEART RATE IRREGULAR [None]
  - DYSPHONIA [None]
  - CHILLS [None]
  - PALPITATIONS [None]
  - DIZZINESS [None]
  - DYSPNOEA [None]
